FAERS Safety Report 5129623-1 (Version None)
Quarter: 2006Q4

REPORT INFORMATION
  Report Type: 
  Country: None (occurrence: None)
  Receive Date: 20061018
  Receipt Date: 20060725
  Transmission Date: 20070319
  Serious: Yes (Hospitalization)
  Sender: FDA-Public Use
  Company Number: BE-ROCHE-456836

PATIENT
  Age: 37 Year
  Sex: Female
  Weight: 83 kg

DRUGS (9)
  1. INTERFERON ALFA-2A [Suspect]
     Indication: METASTATIC RENAL CELL CARCINOMA
     Dosage: GIVEN THREE TIMES PER WEEK.
     Route: 058
     Dates: start: 20050920, end: 20060724
  2. BLINDED BEVACIZUMAB [Suspect]
     Indication: METASTATIC RENAL CELL CARCINOMA
     Dosage: GIVEN ONCE EVERY TWO WEEK CYCLE.
     Route: 042
     Dates: start: 20050920, end: 20060724
  3. LEVOTHYROXINE SODIUM [Concomitant]
     Dosage: THERAPY WAS INTERRUPTED FOR 2 DAYS ON 30 MAY 2006 AND RESTARTED ON 01 JUNE 2006.
     Dates: start: 20060518
  4. MS DIRECT [Concomitant]
     Route: 048
     Dates: start: 20060221
  5. PARIET [Concomitant]
     Dates: start: 20060322
  6. DAFALGAN [Concomitant]
     Dates: start: 20060110
  7. XANAX [Concomitant]
     Dates: start: 20060418
  8. MOVICOL [Concomitant]
     Dates: start: 20060213
  9. ZOLPIDEM TARTRATE [Concomitant]
     Dates: start: 20060724, end: 20060727

REACTIONS (6)
  - ASTHENIA [None]
  - DEPRESSION [None]
  - GENERAL PHYSICAL HEALTH DETERIORATION [None]
  - NAUSEA [None]
  - NEUTROPENIA [None]
  - PERFORMANCE STATUS DECREASED [None]
